FAERS Safety Report 7688289-7 (Version None)
Quarter: 2011Q3

REPORT INFORMATION
  Report Type: 
  Country: None (occurrence: None)
  Receive Date: 20110817
  Receipt Date: 20101012
  Transmission Date: 20111222
  Serious: No
  Sender: FDA-Public Use
  Company Number: US-KINGPHARMUSA00001-K201001264

PATIENT
  Sex: Female
  Weight: 65.76 kg

DRUGS (3)
  1. FERROUS SULFATE TAB [Concomitant]
  2. CYTOMEL [Suspect]
     Indication: BASEDOW'S DISEASE
     Dosage: 5 MCG, TID
     Route: 048
     Dates: start: 20101001
  3. LEVOXYL [Suspect]
     Indication: BASEDOW'S DISEASE
     Dosage: 50 MCG, BID
     Route: 048
     Dates: start: 20101001

REACTIONS (1)
  - SWELLING FACE [None]
